FAERS Safety Report 7206683-5 (Version None)
Quarter: 2011Q1

REPORT INFORMATION
  Report Type: 
  Country: None (occurrence: None)
  Receive Date: 20110103
  Receipt Date: 20101222
  Transmission Date: 20110831
  Serious: No
  Sender: FDA-Public Use
  Company Number: US-PFIZER INC-US-WYE-H14982910

PATIENT
  Sex: Female
  Weight: 78.9 kg

DRUGS (12)
  1. EFFEXOR [Suspect]
     Dosage: UNK
     Dates: start: 20070101
  2. DULOXETINE [Concomitant]
  3. METFORMIN [Concomitant]
  4. METOPROLOL [Concomitant]
  5. OMEPRAZOLE [Concomitant]
  6. CARBAMAZEPINE [Concomitant]
  7. VICODIN [Concomitant]
  8. QUETIAPINE [Concomitant]
  9. GABAPENTIN [Concomitant]
  10. ISOCOM [Concomitant]
  11. ESCITALOPRAM [Concomitant]
  12. CELECOXIB [Concomitant]

REACTIONS (3)
  - NAUSEA [None]
  - ANXIETY [None]
  - PANIC ATTACK [None]
